FAERS Safety Report 4500943-4 (Version None)
Quarter: 2004Q4

REPORT INFORMATION
  Report Type: 
  Country: None (occurrence: None)
  Receive Date: 20041110
  Receipt Date: 20041028
  Transmission Date: 20050328
  Serious: Yes (Hospitalization, Disabling)
  Sender: FDA-Public Use
  Company Number: 002#4#2002-00269

PATIENT
  Age: 38 Year
  Sex: Male

DRUGS (3)
  1. PPA/CPM-75/8MG(OTC) (PHENYLPROPALAMINE HCL, CHLORPHENIRAMINE MALEATE) [Suspect]
     Dosage: ORAL
     Route: 048
  2. CONTAC 12 HOUR [Suspect]
     Dosage: ORAL
     Route: 048
  3. RANITIDINE [Concomitant]

REACTIONS (3)
  - INTRACRANIAL ANEURYSM [None]
  - PYREXIA [None]
  - SUBARACHNOID HAEMORRHAGE [None]
